FAERS Safety Report 18283557 (Version 2)
Quarter: 2020Q4

REPORT INFORMATION
  Report Type: Report from Study
  Country: MX (occurrence: MX)
  Receive Date: 20200918
  Receipt Date: 20201006
  Transmission Date: 20210113
  Serious: Yes (Hospitalization, Other)
  Sender: FDA-Public Use
  Company Number: NVSC2020MX254066

PATIENT
  Age: 52 Year
  Sex: Female
  Weight: 64 kg

DRUGS (8)
  1. EXFORGE [Suspect]
     Active Substance: AMLODIPINE BESYLATE\VALSARTAN
     Indication: HYPERTENSION
     Dosage: 1 DF, QD (5/320)
     Route: 048
     Dates: start: 201707, end: 202007
  2. CHLORTHALIDONE. [Suspect]
     Active Substance: CHLORTHALIDONE
     Dosage: 1 DF, QD
     Route: 048
     Dates: start: 201707, end: 202007
  3. BEZAFIBRATE [Concomitant]
     Active Substance: BEZAFIBRATE
     Indication: BLOOD TRIGLYCERIDES
     Dosage: 1 DF, QD (4 YEARS AGO)
     Route: 048
     Dates: end: 202007
  4. METOPROLOL. [Suspect]
     Active Substance: METOPROLOL
     Indication: FLUID RETENTION
     Dosage: 0.5 DF, TID
     Route: 048
     Dates: start: 201707, end: 202007
  5. METFORMIN [Concomitant]
     Active Substance: METFORMIN HYDROCHLORIDE
     Indication: BLOOD GLUCOSE ABNORMAL
     Dosage: 1 DF, QD (850 MG)
     Route: 048
     Dates: start: 201710, end: 202007
  6. CHLORTHALIDONE. [Suspect]
     Active Substance: CHLORTHALIDONE
     Indication: HYPERTENSION
     Dosage: 1 DF, BID
     Route: 048
     Dates: start: 201707, end: 202007
  7. METOPROLOL. [Suspect]
     Active Substance: METOPROLOL
     Dosage: UNK, QD (1 AND ?)
     Route: 065
     Dates: start: 201707, end: 202007
  8. ALLOPURINOL. [Concomitant]
     Active Substance: ALLOPURINOL
     Indication: BLOOD URIC ACID
     Dosage: 1 DF, QD ( 4 YEARS AGO)
     Route: 048
     Dates: end: 202007

REACTIONS (9)
  - Multiple sclerosis [Recovering/Resolving]
  - Eating disorder [Recovered/Resolved]
  - Memory impairment [Unknown]
  - Gait disturbance [Recovered/Resolved]
  - Blood sodium decreased [Recovered/Resolved]
  - Oropharyngeal pain [Recovered/Resolved]
  - Hypertension [Recovered/Resolved]
  - Product use in unapproved indication [Unknown]
  - Product prescribing error [Unknown]

NARRATIVE: CASE EVENT DATE: 202006
